FAERS Safety Report 5885858-1 (Version None)
Quarter: 2008Q3

REPORT INFORMATION
  Report Type: 
  Country: None (occurrence: None)
  Receive Date: 20080917
  Receipt Date: 20080915
  Transmission Date: 20090109
  Serious: Yes (Death, Other)
  Sender: FDA-Public Use
  Company Number: US-BRISTOL-MYERS SQUIBB COMPANY-14335392

PATIENT
  Age: 54 Year
  Sex: Female

DRUGS (3)
  1. CYCLOPHOSPHAMIDE [Suspect]
     Indication: WEGENER'S GRANULOMATOSIS
     Dosage: STARTED 100MG/DY,THEN 250MG/DY,LATER 350MG/DY,THEN REDUCED TO 200MG/DY,150MG/DY,125MG/DY+75MG/DY
     Route: 048
  2. PREDNISONE TAB [Suspect]
     Dosage: STARTED 20MGX2/DY,THEN REDUCED 20MGX1/DY, LATER INCRESED 150MG/D, THEN TAPERED BY 10MG/DY TO 20MG/DY
  3. METHOTREXATE [Suspect]
     Route: 048

REACTIONS (2)
  - ACUTE MYELOID LEUKAEMIA [None]
  - CYSTITIS HAEMORRHAGIC [None]
